FAERS Safety Report 9390279 (Version 3)
Quarter: 2014Q1

REPORT INFORMATION
  Report Type: Report from Study
  Country: JP (occurrence: JP)
  Receive Date: 20130709
  Receipt Date: 20140306
  Transmission Date: 20141002
  Serious: No
  Sender: FDA-Public Use
  Company Number: JP-009507513-1108USA03580

PATIENT
  Age: 53 Year
  Sex: Male

DRUGS (4)
  1. ISENTRESS TABLETS 400MG [Suspect]
     Indication: HIV INFECTION
     Dosage: 800MG DAILY, DIVIDED DOSE FREQUENCY UNKNOWN
     Route: 048
     Dates: start: 20100921, end: 2013
  2. REYATAZ [Suspect]
     Indication: HIV INFECTION
     Dosage: 300 MG DAILY, DIVIDED DOSE FREQUENCY UNKNOWN
     Route: 048
     Dates: start: 20050203, end: 20050427
  3. REYATAZ [Suspect]
     Dosage: 400 MG DAILY, DIVIDED DOSE FREQUENCY UNKNOWN
     Route: 048
     Dates: start: 20050428, end: 20100920
  4. EPZICOM [Suspect]
     Indication: HIV INFECTION
     Dosage: 1 DOSAGE FORM DAILY, DIVIDED DOSE FREQUENCY UNKNOWN
     Route: 048
     Dates: start: 20091228, end: 2013

REACTIONS (1)
  - Hyperlipidaemia [Not Recovered/Not Resolved]
